FAERS Safety Report 21139196 (Version 1)
Quarter: 2022Q3

REPORT INFORMATION
  Report Type: Report from Study
  Country: US (occurrence: US)
  Receive Date: 20220727
  Receipt Date: 20220727
  Transmission Date: 20221027
  Serious: Yes (Hospitalization, Other)
  Sender: FDA-Public Use
  Company Number: US-GILEAD-2022-0590843

PATIENT
  Age: 64 Year
  Sex: Male
  Weight: 107.2 kg

DRUGS (5)
  1. REMDESIVIR [Suspect]
     Active Substance: REMDESIVIR
     Indication: COVID-19
     Dosage: 5 MG, QD
     Route: 042
     Dates: start: 20220305, end: 20220309
  2. DEXAMETHASONE [Suspect]
     Active Substance: DEXAMETHASONE
     Indication: Respiratory tract infection
     Dosage: 6 MG PER 1.5 ML, EVERY 24H (Q24H)
     Route: 042
     Dates: start: 20220303, end: 20220311
  3. TOZINAMERAN [Suspect]
     Active Substance: TOZINAMERAN
     Indication: COVID-19 immunisation
     Dosage: BLINDED, INFORMATION WITHHELD
     Route: 030
     Dates: start: 20210716, end: 20210716
  4. PRASUGREL [Suspect]
     Active Substance: PRASUGREL
     Indication: Coronary artery disease
     Dosage: 10 MG, QD
     Route: 048
     Dates: start: 2019
  5. XARELTO [Suspect]
     Active Substance: RIVAROXABAN
     Indication: Prophylaxis
     Dosage: 25 MG, BID
     Route: 048
     Dates: start: 20220310

REACTIONS (1)
  - Internal haemorrhage [Recovered/Resolved]

NARRATIVE: CASE EVENT DATE: 20220402
